FAERS Safety Report 9607342 (Version 8)
Quarter: 2014Q2

REPORT INFORMATION
  Report Type: Spontaneous
  Country: US (occurrence: US)
  Receive Date: 20131009
  Receipt Date: 20140426
  Transmission Date: 20141212
  Serious: Yes (Hospitalization, Other)
  Sender: FDA-Public Use
  Company Number: US-JNJFOC-20130916645

PATIENT
  Age: 70 Year
  Sex: Female
  Weight: 60.78 kg

DRUGS (12)
  1. EXTRA STRENGTH TYLENOL [Suspect]
     Indication: PYREXIA
     Dosage: AS NEEDED; MAX 4 GRAMS/24 HOURS
     Route: 048
  2. EXTRA STRENGTH TYLENOL [Suspect]
     Indication: PYREXIA
     Route: 048
     Dates: start: 20110214, end: 20110221
  3. EXTRA STRENGTH TYLENOL [Suspect]
     Indication: HEADACHE
     Dosage: AS NEEDED; MAX 4 GRAMS/24 HOURS
     Route: 048
  4. EXTRA STRENGTH TYLENOL [Suspect]
     Indication: HEADACHE
     Route: 048
     Dates: start: 20110214, end: 20110221
  5. EXTRA STRENGTH TYLENOL [Suspect]
     Indication: PAIN
     Dosage: AS NEEDED; MAX 4 GRAMS/24 HOURS
     Route: 048
  6. EXTRA STRENGTH TYLENOL [Suspect]
     Indication: PAIN
     Route: 048
     Dates: start: 20110214, end: 20110221
  7. TYLENOL [Suspect]
     Indication: PYREXIA
     Dosage: AS NEEDED; MAX 4 GRAMS/24 HOURS
     Route: 054
     Dates: start: 20110221, end: 20110223
  8. TYLENOL [Suspect]
     Indication: HEADACHE
     Dosage: AS NEEDED; MAX 4 GRAMS/24 HOURS
     Route: 054
     Dates: start: 20110221, end: 20110223
  9. MACRODANTIN [Concomitant]
     Indication: PRODUCT USED FOR UNKNOWN INDICATION
     Route: 048
     Dates: start: 20100518
  10. MULTIVITAMINS [Concomitant]
     Indication: PRODUCT USED FOR UNKNOWN INDICATION
     Route: 048
  11. HYDROCODONE ACETAMINOPHEN [Concomitant]
     Indication: PRODUCT USED FOR UNKNOWN INDICATION
     Dosage: 5-500 MG
     Route: 048
  12. MIRALAX [Concomitant]
     Indication: PRODUCT USED FOR UNKNOWN INDICATION
     Route: 065

REACTIONS (6)
  - Hepatitis [Recovering/Resolving]
  - Acute respiratory distress syndrome [Unknown]
  - Respiratory failure [Unknown]
  - Acute hepatic failure [Recovered/Resolved]
  - Accidental overdose [Unknown]
  - Coagulopathy [Recovering/Resolving]
